FAERS Safety Report 20572653 (Version 1)
Quarter: 2022Q1

REPORT INFORMATION
  Report Type: Spontaneous
  Country: US (occurrence: None)
  Receive Date: 20220308
  Receipt Date: 20220308
  Transmission Date: 20220423
  Serious: Yes (Other)
  Sender: FDA-Public Use
  Company Number: None

PATIENT
  Age: 58 Year
  Sex: Male
  Weight: 91.8 kg

DRUGS (2)
  1. ACETAMINOPHEN [Suspect]
     Active Substance: ACETAMINOPHEN
     Indication: Bone pain
     Dosage: OTHER QUANTITY : 2 CAPLETS;?FREQUENCY : EVERY 6 HOURS;?
     Route: 048
     Dates: start: 20220305, end: 20220306
  2. FINASTERIDE [Concomitant]
     Active Substance: FINASTERIDE

REACTIONS (3)
  - Somnolence [None]
  - Inadequate analgesia [None]
  - Pain [None]

NARRATIVE: CASE EVENT DATE: 20220308
